FAERS Safety Report 26162616 (Version 1)
Quarter: 2025Q4

REPORT INFORMATION
  Report Type: Spontaneous
  Country: US (occurrence: US)
  Receive Date: 20251216
  Receipt Date: 20251216
  Transmission Date: 20260117
  Serious: Yes (Death, Life-Threatening, Hospitalization, Other)
  Sender: SANDOZ
  Company Number: US-SANDOZ-SDZ2025US093575

PATIENT
  Age: 60 Year
  Sex: Female

DRUGS (4)
  1. MYCOPHENOLATE MOFETIL [Suspect]
     Active Substance: MYCOPHENOLATE MOFETIL
     Indication: Autoimmune myocarditis
     Dosage: UNK
     Route: 065
  2. PREDNISONE [Suspect]
     Active Substance: PREDNISONE
     Indication: Autoimmune myocarditis
     Dosage: UNK; HIGH DOSE
     Route: 065
  3. SULFAMETHOXAZOLE\TRIMETHOPRIM [Concomitant]
     Active Substance: SULFAMETHOXAZOLE\TRIMETHOPRIM
     Indication: Autoimmune myocarditis
     Route: 065
  4. SULFAMETHOXAZOLE\TRIMETHOPRIM [Concomitant]
     Active Substance: SULFAMETHOXAZOLE\TRIMETHOPRIM
     Indication: Prophylaxis

REACTIONS (10)
  - Disseminated aspergillosis [Fatal]
  - Infection in an immunocompromised host [Fatal]
  - Central nervous system lesion [Fatal]
  - Vasogenic cerebral oedema [Fatal]
  - Pulmonary mass [Fatal]
  - Lung consolidation [Fatal]
  - Hydrocephalus [Fatal]
  - Shock [Fatal]
  - Ventricular tachycardia [Fatal]
  - Product use in unapproved indication [Unknown]
